FAERS Safety Report 12221014 (Version 1)
Quarter: 2016Q1

REPORT INFORMATION
  Report Type: Report from Study
  Country: US (occurrence: US)
  Receive Date: 20160330
  Receipt Date: 20160330
  Transmission Date: 20160526
  Serious: Yes (Hospitalization)
  Sender: FDA-Public Use
  Company Number: US-B.I. PHARMACEUTICALS,INC./RIDGEFIELD-2016-BI-18628BP

PATIENT
  Sex: Male

DRUGS (1)
  1. OFEV [Suspect]
     Active Substance: NINTEDANIB
     Indication: IDIOPATHIC PULMONARY FIBROSIS
     Dosage: 300 MG
     Route: 048
     Dates: start: 20160129

REACTIONS (6)
  - Pulmonary thrombosis [Unknown]
  - Pulmonary hypertension [Unknown]
  - Cerebral thrombosis [Unknown]
  - Medical induction of coma [Unknown]
  - Chest pain [Unknown]
  - Cerebrovascular accident [Unknown]
